FAERS Safety Report 7358344-X (Version None)
Quarter: 2011Q1

REPORT INFORMATION
  Report Type: 
  Country: None (occurrence: None)
  Receive Date: 20110317
  Receipt Date: 20110304
  Transmission Date: 20110831
  Serious: Yes (Hospitalization)
  Sender: FDA-Public Use
  Company Number: PHHY2011FR18816

PATIENT
  Sex: Male

DRUGS (3)
  1. JANUMET [Concomitant]
     Dosage: UNK
  2. CIPROFLOXACIN [Concomitant]
     Dosage: UNK
  3. RASILEZ [Suspect]
     Indication: HYPERTENSION
     Dosage: 1 DF, DAILY
     Dates: start: 20101019

REACTIONS (1)
  - SKIN NECROSIS [None]
